FAERS Safety Report 9885720 (Version 2)
Quarter: 2014Q1

REPORT INFORMATION
  Report Type: Spontaneous
  Country: BR (occurrence: BR)
  Receive Date: 20140210
  Receipt Date: 20140210
  Transmission Date: 20141002
  Serious: Yes (Other)
  Sender: FDA-Public Use
  Company Number: BR-UCBSA-110614

PATIENT
  Sex: Female
  Weight: 64 kg

DRUGS (5)
  1. CIMZIA [Suspect]
     Indication: RHEUMATOID ARTHRITIS
     Dosage: 200 MG/ML, 2 INJECTIONS
     Route: 058
     Dates: start: 20140107, end: 201401
  2. ATACAND HCT [Suspect]
     Indication: HYPERTENSION
     Dosage: DOSE: 16/12.5 MG, DAILY
     Route: 048
     Dates: start: 2009
  3. ARAVA [Concomitant]
     Indication: RHEUMATOID ARTHRITIS
     Route: 048
     Dates: start: 2013
  4. SYNTHROID [Concomitant]
     Indication: HYPOTHYROIDISM
     Route: 048
     Dates: start: 1989
  5. METHOTREXATE [Concomitant]
     Indication: RHEUMATOID ARTHRITIS

REACTIONS (3)
  - Hypersensitivity [Recovered/Resolved]
  - Skin depigmentation [Recovered/Resolved]
  - Muscle haemorrhage [Recovered/Resolved]
